FAERS Safety Report 18176409 (Version 2)
Quarter: 2023Q1

REPORT INFORMATION
  Report Type: Report from Study
  Country: US (occurrence: US)
  Receive Date: 20200820
  Receipt Date: 20230313
  Transmission Date: 20230418
  Serious: Yes (Other)
  Sender: FDA-Public Use
  Company Number: US-SHIRE-US202026432

PATIENT
  Age: 12 Year
  Sex: Male

DRUGS (2)
  1. IDURSULFASE [Suspect]
     Active Substance: IDURSULFASE
     Indication: Mucopolysaccharidosis II
     Dosage: UNK DOSAGE FORM, 1/WEEK
     Route: 042
     Dates: start: 20130211
  2. IDURSULFASE [Suspect]
     Active Substance: IDURSULFASE
     Dosage: 24 MILLIGRAM, 1/WEEK
     Route: 042
     Dates: start: 202205

REACTIONS (2)
  - Vascular device infection [Recovered/Resolved]
  - Tooth abscess [Unknown]

NARRATIVE: CASE EVENT DATE: 20230217
